FAERS Safety Report 7126142-8 (Version None)
Quarter: 2010Q4

REPORT INFORMATION
  Report Type: 
  Country: None (occurrence: None)
  Receive Date: 20101129
  Receipt Date: 20101122
  Transmission Date: 20110411
  Serious: Yes (Other)
  Sender: FDA-Public Use
  Company Number: US-PFIZER INC-2010137044

PATIENT
  Sex: Female
  Weight: 71.202 kg

DRUGS (7)
  1. CHANTIX [Suspect]
     Indication: SMOKING CESSATION THERAPY
     Dosage: 1 MG, 1X/DAY FOR 2 DAYS
     Route: 048
  2. CHANTIX [Suspect]
     Indication: TOBACCO USER
  3. LITHIUM [Concomitant]
     Indication: BIPOLAR DISORDER
     Dosage: UNK
  4. LAMICTAL [Concomitant]
     Dosage: UNK
  5. CYMBALTA [Concomitant]
     Indication: DEPRESSION
     Dosage: UNK
  6. IBUPROFEN [Concomitant]
     Dosage: UNK
  7. RANITIDINE [Concomitant]
     Indication: GASTROOESOPHAGEAL REFLUX DISEASE
     Dosage: UNK

REACTIONS (4)
  - BIPOLAR I DISORDER [None]
  - BORDERLINE PERSONALITY DISORDER [None]
  - DEPRESSION [None]
  - SUICIDAL IDEATION [None]
